FAERS Safety Report 6679504-7 (Version None)
Quarter: 2010Q2

REPORT INFORMATION
  Report Type: 
  Country: None (occurrence: None)
  Receive Date: 20100413
  Receipt Date: 20100331
  Transmission Date: 20101027
  Serious: Yes (Other)
  Sender: FDA-Public Use
  Company Number: PHEH2008US03144

PATIENT
  Sex: Female

DRUGS (28)
  1. AREDIA [Suspect]
     Dosage: UNK
     Dates: start: 20011101, end: 20070401
  2. ZOMETA [Suspect]
  3. DECADRON [Concomitant]
     Dosage: UNK
     Dates: start: 20011101
  4. RADIATION TREATMENT [Concomitant]
  5. ALKERAN [Concomitant]
     Dosage: UNK
     Dates: start: 20011101
  6. PREDNISONE [Concomitant]
  7. COZAAR [Concomitant]
     Dosage: UNK
  8. NAPROXEN [Concomitant]
     Dosage: 250 MG, BID
  9. ALBUTEROL [Concomitant]
  10. IPRATROPIUM [Concomitant]
  11. FENTANYL-100 [Concomitant]
  12. VERSED [Concomitant]
  13. DUONEB [Concomitant]
  14. LORTAB [Concomitant]
  15. MUCINEX [Concomitant]
  16. PROTONIX [Concomitant]
  17. BENADRYL ^WARNER-LAMBERT^               /USA/ [Concomitant]
  18. RELAFEN [Concomitant]
  19. VITAMIN D [Concomitant]
  20. TIMENTIN [Concomitant]
  21. ROCEPHIN [Concomitant]
  22. VELCADE [Concomitant]
  23. ZOFRAN [Concomitant]
  24. MIRALAX [Concomitant]
  25. LACTULOSE [Concomitant]
  26. AUGMENTIN '125' [Concomitant]
  27. ARANESP [Concomitant]
  28. CLINDAMYCIN [Concomitant]
     Dosage: UNK

REACTIONS (66)
  - ANAEMIA [None]
  - ANXIETY [None]
  - BACK PAIN [None]
  - BONE LESION [None]
  - BRONCHITIS [None]
  - CARDIOMEGALY [None]
  - CHILLS [None]
  - COLITIS [None]
  - COMPRESSION FRACTURE [None]
  - CONSTIPATION [None]
  - DEBRIDEMENT [None]
  - DENTAL DISCOMFORT [None]
  - DENTAL NECROSIS [None]
  - DENTAL PROSTHESIS USER [None]
  - DIARRHOEA [None]
  - DIVERTICULUM [None]
  - DYSPNOEA [None]
  - EMOTIONAL DISTRESS [None]
  - EMPHYSEMA [None]
  - EMPYEMA [None]
  - ENDODONTIC PROCEDURE [None]
  - EXOSTOSIS [None]
  - FATIGUE [None]
  - FISTULA REPAIR [None]
  - GINGIVAL SWELLING [None]
  - GRANULOMA [None]
  - HAEMATOCHEZIA [None]
  - HAEMORRHOIDS [None]
  - HERPES ZOSTER [None]
  - HOT FLUSH [None]
  - INFECTION [None]
  - INFLAMMATION [None]
  - INFLUENZA [None]
  - INJURY [None]
  - JAW DISORDER [None]
  - LUMBAR SPINAL STENOSIS [None]
  - MIGRAINE [None]
  - MULTIPLE MYELOMA [None]
  - MYCOBACTERIUM AVIUM COMPLEX INFECTION [None]
  - NEURALGIA [None]
  - NEUTROPENIA [None]
  - OEDEMA [None]
  - ORAL DISCHARGE [None]
  - ORAL DISORDER [None]
  - OSTEOARTHRITIS [None]
  - OSTEONECROSIS [None]
  - OSTEOPENIA [None]
  - OSTEOPOROSIS [None]
  - PAIN [None]
  - PHYSICAL DISABILITY [None]
  - PLEURAL EFFUSION [None]
  - PLEURISY [None]
  - PNEUMONIA [None]
  - PYREXIA [None]
  - RECTAL HAEMORRHAGE [None]
  - SCAR [None]
  - SENSITIVITY OF TEETH [None]
  - SPINAL FUSION SURGERY [None]
  - SPINAL OSTEOARTHRITIS [None]
  - SPONDYLOLISTHESIS [None]
  - SYNOVIAL CYST [None]
  - THORACOTOMY [None]
  - THYROIDECTOMY [None]
  - TOOTHACHE [None]
  - VERTEBROPLASTY [None]
  - VERTIGO [None]
